FAERS Safety Report 10949351 (Version 1)
Quarter: 2015Q1

REPORT INFORMATION
  Report Type: Spontaneous
  Country: JP (occurrence: None)
  Receive Date: 20150320
  Receipt Date: 20150320
  Transmission Date: 20150721
  Serious: Yes (Hospitalization)
  Sender: FDA-Public Use
  Company Number: JP-20150046

PATIENT
  Age: 81 Year
  Sex: Female

DRUGS (2)
  1. LIPIODOL ULTRA-FLUIDE [Suspect]
     Active Substance: ETHIODIZED OIL
     Indication: THERAPEUTIC EMBOLISATION
     Route: 013
  2. HISTOACRYL (N-BUTYL-2-CYANOACRYLATE) (N-BUTYL-2-CYANOCRYLATE) [Concomitant]

REACTIONS (4)
  - Product use issue [None]
  - Gastrointestinal necrosis [None]
  - Aneurysm [None]
  - Intestinal ischaemia [None]
